FAERS Safety Report 4940963-9 (Version None)
Quarter: 2006Q1

REPORT INFORMATION
  Report Type: 
  Country: None (occurrence: None)
  Receive Date: 20060313
  Receipt Date: 20051219
  Transmission Date: 20060701
  Serious: Yes (Other)
  Sender: FDA-Public Use
  Company Number: CA-BRISTOL-MYERS SQUIBB COMPANY-13223359

PATIENT
  Age: 59 Year
  Sex: Female

DRUGS (11)
  1. BLINDED: MURAGLITAZAR [Suspect]
     Indication: DIABETES MELLITUS NON-INSULIN-DEPENDENT
     Route: 048
     Dates: start: 20050423
  2. GLIMEPIRIDE [Suspect]
     Indication: DIABETES MELLITUS NON-INSULIN-DEPENDENT
     Route: 048
     Dates: start: 20050423
  3. METFORMIN HYDROCHLORIDE [Suspect]
     Indication: DIABETES MELLITUS NON-INSULIN-DEPENDENT
     Route: 048
     Dates: start: 19980915
  4. ALTACE [Concomitant]
     Dates: start: 20040601
  5. ATENOLOL [Concomitant]
     Dates: start: 20030108
  6. PARIET [Concomitant]
     Dates: start: 20031001
  7. SIMVASTATIN [Concomitant]
     Dates: start: 20030831
  8. ASPIRIN [Concomitant]
     Dates: start: 20030131
  9. TIAZAC [Concomitant]
     Dates: start: 20040928
  10. NITROGLYCERIN [Concomitant]
     Dates: start: 20040923
  11. DYAZIDE [Concomitant]
     Dates: start: 20040710

REACTIONS (1)
  - LUNG SQUAMOUS CELL CARCINOMA STAGE UNSPECIFIED [None]
